FAERS Safety Report 12562241 (Version 1)
Quarter: 2016Q3

REPORT INFORMATION
  Report Type: Spontaneous
  Country: FR (occurrence: FR)
  Receive Date: 20160715
  Receipt Date: 20160715
  Transmission Date: 20161109
  Serious: Yes (Hospitalization)
  Sender: FDA-Public Use
  Company Number: FR-009507513-1607FRA006148

PATIENT
  Age: 84 Year
  Sex: Male

DRUGS (10)
  1. VENLAFAXINE HYDROCHLORIDE. [Concomitant]
     Active Substance: VENLAFAXINE HYDROCHLORIDE
  2. KARDEGIC [Concomitant]
     Active Substance: ASPIRIN LYSINE
  3. INEXIUM (ESOMEPRAZOLE MAGNESIUM) [Concomitant]
     Active Substance: ESOMEPRAZOLE MAGNESIUM
     Dosage: GASTRORESISTANT TABLET
  4. LASILIX [Concomitant]
     Active Substance: FUROSEMIDE
  5. NEBIVOLOL. [Concomitant]
     Active Substance: NEBIVOLOL
  6. INVANZ [Suspect]
     Active Substance: ERTAPENEM SODIUM
     Indication: PYELONEPHRITIS
     Dosage: 1 G, QD
     Route: 042
     Dates: start: 20160117, end: 20160208
  7. FUMAFER [Concomitant]
     Active Substance: FERROUS FUMARATE
  8. DOLIPRANE [Concomitant]
     Active Substance: ACETAMINOPHEN
  9. SODIUM BICARBONATE. [Concomitant]
     Active Substance: SODIUM BICARBONATE
  10. AMLODIPINE [Concomitant]
     Active Substance: AMLODIPINE BESYLATE

REACTIONS (2)
  - Fall [Recovered/Resolved]
  - Confusional state [Recovered/Resolved]

NARRATIVE: CASE EVENT DATE: 2016
